FAERS Safety Report 5532739-9 (Version None)
Quarter: 2007Q4

REPORT INFORMATION
  Report Type: 
  Country: None (occurrence: None)
  Receive Date: 20071204
  Receipt Date: 20071203
  Transmission Date: 20080405
  Serious: Yes (Other)
  Sender: FDA-Public Use
  Company Number: PHNU2007DE03228

PATIENT
  Sex: Male
  Weight: 90 kg

DRUGS (1)
  1. LAMISIL [Suspect]
     Indication: ONYCHOMYCOSIS
     Dosage: 250MG/DAY
     Route: 048
     Dates: start: 20040614, end: 20041012

REACTIONS (2)
  - AGEUSIA [None]
  - PAROSMIA [None]
